FAERS Safety Report 4600927-1 (Version None)
Quarter: 2005Q1

REPORT INFORMATION
  Report Type: 
  Country: None (occurrence: None)
  Receive Date: 20050127
  Receipt Date: 20041022
  Transmission Date: 20050727
  Serious: No
  Sender: FDA-Public Use
  Company Number: USA041082103

PATIENT
  Age: 40 Year
  Sex: Male
  Weight: 95 kg

DRUGS (1)
  1. STRATTERA [Suspect]
     Dosage: 60 MG

REACTIONS (5)
  - ANOREXIA [None]
  - ASTHENIA [None]
  - DRY MOUTH [None]
  - PENILE DISCHARGE [None]
  - SLEEP DISORDER [None]
